FAERS Safety Report 7327658-1 (Version None)
Quarter: 2011Q1

REPORT INFORMATION
  Report Type: 
  Country: None (occurrence: None)
  Receive Date: 20110303
  Receipt Date: 20100914
  Transmission Date: 20110831
  Serious: Yes (Hospitalization)
  Sender: FDA-Public Use
  Company Number: US-BAYER-201024927NA

PATIENT
  Sex: Female
  Weight: 84.545 kg

DRUGS (6)
  1. YAZ [Suspect]
     Indication: PREMENSTRUAL SYNDROME
     Route: 048
     Dates: start: 20070913, end: 20090806
  2. WELLBUTRIN XL [Concomitant]
     Indication: DEPRESSION
     Dosage: 300 MG (DAILY DOSE), ,
     Dates: start: 20080114, end: 20100701
  3. PHENTERMINE [Concomitant]
  4. LAMICTAL [Concomitant]
     Indication: AFFECTIVE DISORDER
     Dosage: 50 MG (DAILY DOSE), ,
     Dates: start: 20070101
  5. YAZ [Suspect]
  6. XANAX [Concomitant]
     Indication: ANXIETY
     Dosage: 0.58 MG (DAILY DOSE), PRN,
     Dates: start: 20070101

REACTIONS (5)
  - CHOLECYSTITIS CHRONIC [None]
  - ABDOMINAL PAIN UPPER [None]
  - CHANGE OF BOWEL HABIT [None]
  - ABDOMINAL PAIN [None]
  - BILIARY DYSKINESIA [None]
